FAERS Safety Report 10085709 (Version 3)
Quarter: 2014Q3

REPORT INFORMATION
  Report Type: Spontaneous
  Country: US (occurrence: None)
  Receive Date: 20140416
  Receipt Date: 20140724
  Transmission Date: 20150326
  Serious: Yes (Hospitalization)
  Sender: FDA-Public Use
  Company Number: 2014AP002582

PATIENT
  Age: 69 Year
  Sex: Female

DRUGS (12)
  1. PAXIL CR [Suspect]
     Active Substance: PAROXETINE HYDROCHLORIDE
     Indication: PRODUCT USED FOR UNKNOWN INDICATION
  2. MULTIVITAMIN (ASCORBIC ACID, CALCIUM PANTOTHENATE, ERGOCALCIFEROL NICOTINAMIDE, PYRIDOXINE HYDROCHLORIDE, RETINOL, RIBOFLAVIN, THIAINE HYDROCHLORIDE) [Concomitant]
  3. FISH OIL (FISH OIL) [Concomitant]
     Active Substance: FISH OIL
  4. AMLODIPINE [Concomitant]
     Active Substance: AMLODIPINE BESYLATE
  5. THYROXINE SODIUM (LEVOTHYROXINE SODIUM) [Concomitant]
  6. FLUTICASONE W/SALMETEROL [Suspect]
     Active Substance: FLUTICASONE PROPIONATE\SALMETEROL XINAFOATE
     Indication: PRODUCT USED FOR UNKNOWN INDICATION
     Dosage: UNK, RESPIRATORY
     Route: 055
  7. ASCORBIC ACID (ASCORBIC ACID) [Concomitant]
  8. CLONAZEPAM (CLONAZEPAM) [Concomitant]
  9. LAMOTRIGINE. [Suspect]
     Active Substance: LAMOTRIGINE
     Indication: DEPRESSION
     Dosage: 200 UNK, UNK, ORAL
     Route: 048
  10. LURASIDONE (LURASIDONE) [Concomitant]
  11. ATORVASTATIN CALCIUM (ATORVASTATIN CALCIUM) [Concomitant]
     Active Substance: ATORVASTATIN CALCIUM
  12. CALCIUM (CALCIUM GLUCONATE) [Concomitant]

REACTIONS (5)
  - Coronary artery bypass [None]
  - Confusional state [None]
  - Cerebrovascular accident [None]
  - Chest pain [None]
  - No adverse event [None]

NARRATIVE: CASE EVENT DATE: 201307
